FAERS Safety Report 17848477 (Version 1)
Quarter: 2020Q2

REPORT INFORMATION
  Report Type: Spontaneous
  Country: FR (occurrence: FR)
  Receive Date: 20200602
  Receipt Date: 20200602
  Transmission Date: 20200714
  Serious: Yes (Death, Hospitalization, Other)
  Sender: FDA-Public Use
  Company Number: FR-BRISTOL-MYERS SQUIBB COMPANY-BMS-2020-042586

PATIENT
  Age: 71 Year
  Sex: Male
  Weight: 61 kg

DRUGS (3)
  1. OPDIVO [Suspect]
     Active Substance: NIVOLUMAB
     Indication: RENAL CANCER
     Dosage: 180 MILLIGRAM, QCYCLE
     Route: 042
     Dates: start: 20200312, end: 20200402
  2. IMIPENEM CILASTATINE MYLAN [Suspect]
     Active Substance: IMIPENEM
     Indication: INFECTION
     Dosage: 3 GRAM, QD
     Route: 042
     Dates: start: 20200326, end: 20200416
  3. YERVOY [Suspect]
     Active Substance: IPILIMUMAB
     Indication: RENAL CANCER
     Dosage: 60 MILLIGRAM, QCYCLE
     Route: 042
     Dates: start: 20200312, end: 20200402

REACTIONS (3)
  - Agranulocytosis [Not Recovered/Not Resolved]
  - Malignant neoplasm progression [Fatal]
  - Thrombocytopenia [Not Recovered/Not Resolved]

NARRATIVE: CASE EVENT DATE: 2020
